FAERS Safety Report 8605520 (Version 4)
Quarter: 2012Q4

REPORT INFORMATION
  Report Type: 
  Country: US (occurrence: US)
  Receive Date: 20120608
  Receipt Date: 20120904
  Transmission Date: 20130627
  Serious: Yes (Hospitalization, Other)
  Sender: FDA-Public Use
  Company Number: US-JNJFOC-20120600716

PATIENT
  Age: 83 None
  Sex: Male
  Weight: 64.86 kg

DRUGS (15)
  1. XARELTO [Suspect]
     Indication: CEREBROVASCULAR ACCIDENT PROPHYLAXIS
     Route: 048
     Dates: start: 20120315, end: 20120430
  2. XARELTO [Suspect]
     Indication: ATRIAL FIBRILLATION
     Route: 048
     Dates: start: 20120315, end: 20120430
  3. XARELTO [Suspect]
     Indication: ATRIAL FIBRILLATION
     Route: 048
  4. WARFARIN [Concomitant]
     Indication: CARDIAC DISORDER
  5. METOPROLOL [Concomitant]
  6. LEVETIRACETAM [Concomitant]
     Indication: CONVULSION
  7. VIMPAT [Concomitant]
     Indication: CONVULSION
  8. FUROSEMIDE [Concomitant]
  9. DIGOXIN [Concomitant]
  10. LEVOTHYROXINE [Concomitant]
  11. DHEA [Concomitant]
  12. VITAMIN D3 [Concomitant]
  13. VITAMIN B COMPLEX [Concomitant]
  14. MESALAMINE [Concomitant]
     Indication: COLITIS
  15. XARELTO [Suspect]
     Indication: CEREBROVASCULAR ACCIDENT PROPHYLAXIS
     Route: 048

REACTIONS (6)
  - Epistaxis [Recovered/Resolved]
  - Intestinal haemorrhage [Recovered/Resolved]
  - Skin discolouration [Recovered/Resolved]
  - Abnormal behaviour [Recovered/Resolved]
  - Asthenia [Recovered/Resolved]
  - Haematochezia [Recovered/Resolved]
